FAERS Safety Report 9295081 (Version 1)
Quarter: 2013Q2

REPORT INFORMATION
  Report Type: Spontaneous
  Country: CH (occurrence: CH)
  Receive Date: 20130517
  Receipt Date: 20130517
  Transmission Date: 20140414
  Serious: Yes (Death, Other)
  Sender: FDA-Public Use
  Company Number: PHHY2013CH047509

PATIENT
  Age: 58 Year
  Sex: Female

DRUGS (3)
  1. LETROZOLE [Suspect]
     Indication: BREAST CANCER
     Dosage: 2.5 MG, DAILY
  2. CISPLATIN [Suspect]
     Dosage: 25 MG/M2,
  3. ETOPOSIDE [Suspect]
     Dosage: 80 MG/M2

REACTIONS (5)
  - Breast cancer stage III [Fatal]
  - Malignant neoplasm progression [Fatal]
  - Cerebrovascular accident [Unknown]
  - Hemianopia [Unknown]
  - Reading disorder [Unknown]
